FAERS Safety Report 7567958-3 (Version None)
Quarter: 2011Q2

REPORT INFORMATION
  Report Type: 
  Country: None (occurrence: None)
  Receive Date: 20110616
  Receipt Date: 20110606
  Transmission Date: 20111010
  Serious: Yes (Other)
  Sender: FDA-Public Use
  Company Number: GER/UK/11/0018626

PATIENT
  Age: 89 Year
  Sex: Female
  Weight: 53 kg

DRUGS (10)
  1. ACETAMINOPHEN [Concomitant]
  2. ALENDRONATE SODIUM [Suspect]
     Indication: OSTEOPOROSIS
     Dosage: 10 MG, ORAL
     Route: 048
  3. DOCUSATE SODIUM (DOCUSATE SODIUM) [Concomitant]
  4. PRAVASTATIN SODIUM [Concomitant]
  5. LOSARTAN (LORSARTAN) [Concomitant]
  6. ADCAL-D3 (LEKOVIT CA) [Concomitant]
  7. CITALOPRAM HYDROBROMIDE [Concomitant]
  8. OMEPRAZOLE [Concomitant]
  9. FERROUS FUMARATE [Concomitant]
  10. INSULIN DETEMIR (INSULIN DETEMIR) [Concomitant]

REACTIONS (4)
  - OESOPHAGEAL ULCER [None]
  - MELAENA [None]
  - HYPOTENSION [None]
  - GASTROINTESTINAL MUCOSAL EXFOLIATION [None]
